FAERS Safety Report 5068206-9 (Version None)
Quarter: 2006Q3

REPORT INFORMATION
  Report Type: 
  Country: None (occurrence: None)
  Receive Date: 20060802
  Receipt Date: 20050602
  Transmission Date: 20061208
  Serious: No
  Sender: FDA-Public Use
  Company Number: US-BRISTOL-MYERS SQUIBB COMPANY-12991717

PATIENT
  Sex: Female

DRUGS (1)
  1. COUMADIN [Suspect]
     Indication: COAGULOPATHY
     Dosage: USUAL DOSE 5MG DAILY; BEEN ON DRUG FOR THE LAST 2 YEARS
     Route: 048
     Dates: start: 20030101

REACTIONS (2)
  - DRUG DOSE OMISSION [None]
  - INTERNATIONAL NORMALISED RATIO DECREASED [None]
